FAERS Safety Report 8070497-7 (Version None)
Quarter: 2012Q1

REPORT INFORMATION
  Report Type: 
  Country: None (occurrence: None)
  Receive Date: 20120125
  Receipt Date: 20120120
  Transmission Date: 20120608
  Serious: Yes (Other)
  Sender: FDA-Public Use
  Company Number: US-ROCHE-724059

PATIENT
  Sex: Female
  Weight: 96 kg

DRUGS (15)
  1. HERCEPTIN [Suspect]
     Indication: BREAST CANCER
     Dosage: FORM: VIALS
     Route: 042
  2. LACTIC ACID [Concomitant]
     Dosage: AS NEEDED.
  3. DOCETAXEL [Suspect]
     Indication: BREAST CANCER
     Dosage: FORM: VIALS.  TOTAL DOSE: 160 MG.  THE LAST DOSE PRIOR TO SAE: 13 MAY 2010
     Route: 042
  4. METFORMIN HYDROCHLORIDE [Concomitant]
  5. LISINOPRIL [Concomitant]
     Dosage: 20 MG QAM
  6. ARTIFICIAL TEARS NOS [Concomitant]
  7. OMEPRAZOLE [Concomitant]
  8. ARIMIDEX [Concomitant]
  9. AVASTIN [Suspect]
     Indication: BREAST CANCER
     Dosage: TOTAL DOSE: 1530 MG.  FORM: VIALS. THE LAST DOSE PRIOR TO SAE: 15 JULY 2010.
     Route: 042
     Dates: start: 20100128, end: 20100804
  10. HERCEPTIN [Suspect]
     Route: 042
  11. LISINOPRIL [Concomitant]
     Dosage: 20 MG QAM, 10 MG QPM
  12. RESTASIS [Concomitant]
     Dosage: FREQUENCY: BID.
  13. LOTEMAX [Concomitant]
     Dates: start: 20100525, end: 20100630
  14. CARBOPLATIN [Suspect]
     Indication: BREAST CANCER
     Dosage: DOSE: 6 AUC.  TOTAL DOSE: 770 MG.  FORM: VIALS. THE LAST DOSE PRIOR TO SAE: 13 MAY 2010
     Route: 042
  15. GLIMEPIRIDE [Concomitant]

REACTIONS (2)
  - LACRIMATION INCREASED [None]
  - EYELID FUNCTION DISORDER [None]
